FAERS Safety Report 8167747-5 (Version None)
Quarter: 2012Q1

REPORT INFORMATION
  Report Type: 
  Country: None (occurrence: None)
  Receive Date: 20120227
  Receipt Date: 20120224
  Transmission Date: 20120608
  Serious: No
  Sender: FDA-Public Use
  Company Number: US-PFIZER INC-2012050055

PATIENT
  Sex: Female
  Weight: 70.295 kg

DRUGS (10)
  1. PAXIL [Concomitant]
     Indication: DEPRESSION
     Dosage: UNK
  2. ALBUTEROL [Concomitant]
     Indication: EMPHYSEMA
     Dosage: UNK
  3. CHANTIX [Suspect]
     Dosage: UNK
     Dates: start: 20110101, end: 20110101
  4. CHANTIX [Suspect]
     Indication: SMOKING CESSATION THERAPY
     Dosage: 0.5 MG, DAILY
     Dates: start: 20110101, end: 20110101
  5. ALBUTEROL [Concomitant]
     Indication: CHRONIC OBSTRUCTIVE PULMONARY DISEASE
  6. ASCORBIC ACID [Concomitant]
     Dosage: 1000 MG, UNK
  7. SOMA [Concomitant]
     Indication: HEADACHE
     Dosage: UNK
  8. ELAVIL [Concomitant]
     Indication: DEPRESSION
     Dosage: UNK
  9. NEXIUM [Concomitant]
     Indication: ULCER
     Dosage: UNK
  10. KLONOPIN [Concomitant]
     Indication: ANXIETY
     Dosage: UNK

REACTIONS (1)
  - THERAPEUTIC RESPONSE UNEXPECTED [None]
